FAERS Safety Report 10801986 (Version 1)
Quarter: 2015Q1

REPORT INFORMATION
  Report Type: Spontaneous
  Country: US (occurrence: US)
  Receive Date: 20150217
  Receipt Date: 20150217
  Transmission Date: 20150721
  Serious: Yes (Death)
  Sender: FDA-Public Use
  Company Number: US-BANPHARM-20153434

PATIENT
  Age: 41 Year
  Sex: Female

DRUGS (8)
  1. LIDOCAINE HYDROCHLORIDE UNKNOWN PRODUCT [Suspect]
     Active Substance: LIDOCAINE HYDROCHLORIDE
  2. HYDROCODONE [Suspect]
     Active Substance: HYDROCODONE
  3. OLANZAPINE. [Suspect]
     Active Substance: OLANZAPINE
  4. TRAMADOL [Suspect]
     Active Substance: TRAMADOL
  5. ALPRAZOLAM. [Suspect]
     Active Substance: ALPRAZOLAM
  6. AMPHETAMINE [Suspect]
     Active Substance: AMPHETAMINE
  7. ACETAMINOPHEN. [Suspect]
     Active Substance: ACETAMINOPHEN
  8. HYDROXYZINE [Suspect]
     Active Substance: HYDROXYZINE\HYDROXYZINE HYDROCHLORIDE

REACTIONS (1)
  - Drug abuse [Fatal]
